FAERS Safety Report 20818830 (Version 3)
Quarter: 2022Q4

REPORT INFORMATION
  Report Type: Spontaneous
  Country: US (occurrence: US)
  Receive Date: 20220512
  Receipt Date: 20221117
  Transmission Date: 20230112
  Serious: No
  Sender: FDA-Public Use
  Company Number: US-Calliditas-2022CAL00073

PATIENT
  Age: 44 Year
  Sex: Male

DRUGS (11)
  1. TARPEYO [Suspect]
     Active Substance: BUDESONIDE
     Indication: IgA nephropathy
     Dosage: 16 MG (4 MG CAPSULES) DAILY
     Route: 050
     Dates: start: 20220424
  2. PREDNISONE [Concomitant]
     Active Substance: PREDNISONE
  3. SYNTHROID [Concomitant]
     Active Substance: LEVOTHYROXINE SODIUM
  4. KEPPRA [Concomitant]
     Active Substance: LEVETIRACETAM
     Dosage: TIME INTERVAL:
  5. VIMPAT [Concomitant]
     Active Substance: LACOSAMIDE
  6. SOMAVERT [Concomitant]
     Active Substance: PEGVISOMANT
  7. LOSARTAN [Concomitant]
     Active Substance: LOSARTAN
  8. FORTESTA [Concomitant]
     Active Substance: TESTOSTERONE
  9. AZELASTINE [Concomitant]
     Active Substance: AZELASTINE
  10. FLOVENT [Concomitant]
     Active Substance: FLUTICASONE PROPIONATE
  11. PEPCID [Concomitant]
     Active Substance: FAMOTIDINE
     Dosage: PEPCID 10 MG DAILY

REACTIONS (5)
  - Weight increased [Not Recovered/Not Resolved]
  - Dyspepsia [Not Recovered/Not Resolved]
  - Affect lability [Not Recovered/Not Resolved]
  - Increased appetite [Not Recovered/Not Resolved]
  - Fluid retention [Not Recovered/Not Resolved]

NARRATIVE: CASE EVENT DATE: 20220501
